FAERS Safety Report 17151269 (Version 2)
Quarter: 2020Q1

REPORT INFORMATION
  Report Type: Spontaneous
  Country: US (occurrence: US)
  Receive Date: 20191213
  Receipt Date: 20200116
  Transmission Date: 20200409
  Serious: No
  Sender: FDA-Public Use
  Company Number: US-PFIZER INC-2019430879

PATIENT
  Age: 76 Year
  Sex: Male

DRUGS (2)
  1. VYNDAMAX [Suspect]
     Active Substance: TAFAMIDIS
     Indication: HEREDITARY NEUROPATHIC AMYLOIDOSIS
     Dosage: 61 MG, UNK
  2. VYNDAMAX [Suspect]
     Active Substance: TAFAMIDIS
     Indication: AMYLOIDOSIS

REACTIONS (6)
  - Glucose tolerance impaired [Unknown]
  - Off label use [Unknown]
  - Product use in unapproved indication [Unknown]
  - Fluid retention [Unknown]
  - Diabetic foot [Unknown]
  - Weight abnormal [Unknown]
